FAERS Safety Report 6226739 (Version 4)
Quarter: 2020Q3

REPORT INFORMATION
  Report Type: Report from Study
  Country: BR (occurrence: BR)
  Receive Date: 20070130
  Receipt Date: 20080108
  Transmission Date: 20201105
  Serious: Yes (Other)
  Sender: FDA-Public Use
  Company Number: HQWYE174222JAN07

PATIENT
  Age: 81 Year
  Sex: Female
  Weight: 63.6 kg

DRUGS (6)
  1. TERBUTALINE SULFATE. [Concomitant]
     Active Substance: TERBUTALINE SULFATE
     Indication: COUGH
     Dosage: UNKNOWN
     Route: 048
     Dates: start: 20000101
  2. RALOXIFENE HYDROCHLORIDE. [Suspect]
     Active Substance: RALOXIFENE HYDROCHLORIDE
     Indication: FRACTURE
  3. METHYL SALICYLATE [Concomitant]
     Active Substance: METHYL SALICYLATE
     Dosage: UNKNOWN
     Route: 065
     Dates: start: 20000101
  4. RALOXIFENE HYDROCHLORIDE. [Suspect]
     Active Substance: RALOXIFENE HYDROCHLORIDE
     Indication: PROPHYLAXIS
  5. HYDROCHLOROTHIAZIDE. [Concomitant]
     Active Substance: HYDROCHLOROTHIAZIDE
     Indication: HYPERTENSION
     Route: 048
     Dates: start: 20000101
  6. RALOXIFENE HYDROCHLORIDE. [Suspect]
     Active Substance: RALOXIFENE HYDROCHLORIDE
     Indication: OSTEOPOROSIS
     Route: 048
     Dates: start: 20030721, end: 20070117

REACTIONS (2)
  - Paraesthesia [Recovered/Resolved]
  - Dyskinesia [Recovered/Resolved]

NARRATIVE: CASE EVENT DATE: 20061126
